FAERS Safety Report 18289468 (Version 1)
Quarter: 2020Q3

REPORT INFORMATION
  Report Type: Spontaneous
  Country: QA (occurrence: QA)
  Receive Date: 20200921
  Receipt Date: 20200921
  Transmission Date: 20201103
  Serious: Yes (Hospitalization)
  Sender: FDA-Public Use
  Company Number: QA-AKORN PHARMACEUTICALS-2020AKN01186

PATIENT
  Age: 43 Year
  Sex: Male

DRUGS (5)
  1. PYRIDOXINE [Concomitant]
     Active Substance: PYRIDOXINE
     Indication: MENINGITIS TUBERCULOUS
     Dosage: 50 MG, 1X/DAY
     Route: 048
  2. RIFAMPIN. [Suspect]
     Active Substance: RIFAMPIN
     Indication: MENINGITIS TUBERCULOUS
     Dosage: 600 MG, 1X/DAY
     Route: 048
  3. CYCLOSERINE. [Concomitant]
     Active Substance: CYCLOSERINE
     Indication: MENINGITIS TUBERCULOUS
     Dosage: 500 MG, 2X/DAY
     Route: 048
  4. ETHIONAMIDE [Concomitant]
     Active Substance: ETHIONAMIDE
     Indication: MENINGITIS TUBERCULOUS
     Dosage: 500 MG, 1X/DAY
     Route: 048
  5. MOXIFLOXACIN. [Concomitant]
     Active Substance: MOXIFLOXACIN
     Indication: MENINGITIS TUBERCULOUS
     Dosage: 400 UNK, 1X/DAY
     Route: 048

REACTIONS (1)
  - Pneumonitis [Recovered/Resolved]
